FAERS Safety Report 7719483-4 (Version None)
Quarter: 2011Q3

REPORT INFORMATION
  Report Type: 
  Country: None (occurrence: None)
  Receive Date: 20110830
  Receipt Date: 20110817
  Transmission Date: 20111222
  Serious: Yes (Other)
  Sender: FDA-Public Use
  Company Number: JP-MYLANLABS-2011S1017564

PATIENT
  Age: 6 Decade
  Sex: Female
  Weight: 47 kg

DRUGS (5)
  1. CYCLOPHOSPHAMIDE [Suspect]
     Indication: METASTASES TO LUNG
     Route: 065
  2. EPIRUBICIN [Suspect]
     Indication: METASTASES TO LUNG
     Route: 065
  3. FLUOROURACIL [Suspect]
     Indication: METASTASES TO LUNG
     Route: 065
  4. DOCETAXEL [Suspect]
     Indication: METASTASES TO LUNG
     Route: 065
  5. PACLITAXEL [Suspect]
     Indication: METASTASES TO LUNG
     Dosage: TRIWEEKLY PACLITAXEL 210 MG/M2
     Route: 065

REACTIONS (4)
  - FATIGUE [None]
  - HYPERVENTILATION [None]
  - NEUTROPENIA [None]
  - NEUROPATHY PERIPHERAL [None]
